FAERS Safety Report 4702304-1 (Version None)
Quarter: 2005Q2

REPORT INFORMATION
  Report Type: 
  Country: None (occurrence: None)
  Receive Date: 20050628
  Receipt Date: 20050628
  Transmission Date: 20051028
  Serious: Yes (Life-Threatening, Hospitalization)
  Sender: FDA-Public Use
  Company Number: None

PATIENT
  Sex: Female
  Weight: 82.4 kg

DRUGS (7)
  1. DIGOXIN [Suspect]
     Indication: ATRIAL FIBRILLATION
     Dosage: 0.25 MG   DAILY   ORAL
     Route: 048
     Dates: start: 20050525, end: 20050623
  2. VERAPAMIL [Concomitant]
  3. PROTONIX [Concomitant]
  4. ZOLOFT [Concomitant]
  5. LASIX [Concomitant]
  6. ASPIRIN [Concomitant]
  7. FLAGYL [Concomitant]

REACTIONS (7)
  - DIARRHOEA [None]
  - DYSGEUSIA [None]
  - HYPOKALAEMIA [None]
  - NAUSEA [None]
  - THERAPEUTIC AGENT TOXICITY [None]
  - VISUAL DISTURBANCE [None]
  - VOMITING [None]
